FAERS Safety Report 15252389 (Version 1)
Quarter: 2018Q3

REPORT INFORMATION
  Report Type: Spontaneous
  Country: US (occurrence: US)
  Receive Date: 20180717
  Receipt Date: 20180717
  Transmission Date: 20181010
  Serious: No
  Sender: FDA-Public Use
  Company Number: None

PATIENT
  Age: 67 Year
  Sex: Female
  Weight: 70.2 kg

DRUGS (20)
  1. XELODA [Suspect]
     Active Substance: CAPECITABINE
     Indication: NEOPLASM MALIGNANT
     Route: 048
     Dates: start: 20151203
  2. LANTUS SOLOSTAR [Concomitant]
     Active Substance: INSULIN GLARGINE
  3. LYRICA [Concomitant]
     Active Substance: PREGABALIN
  4. LETROZOLE. [Concomitant]
     Active Substance: LETROZOLE
  5. METOPROLOL. [Concomitant]
     Active Substance: METOPROLOL
  6. MULTIPLE VITAMIN [Concomitant]
     Active Substance: VITAMINS
  7. TRADJENTA [Concomitant]
     Active Substance: LINAGLIPTIN
  8. CALCIUM 500+ D [Concomitant]
  9. MORPHINE SULFATE ER [Concomitant]
     Active Substance: MORPHINE SULFATE
  10. ASPIRIN. [Concomitant]
     Active Substance: ASPIRIN
  11. RANITIDINE HCL [Concomitant]
     Active Substance: RANITIDINE HYDROCHLORIDE
  12. GABAPENTIN. [Concomitant]
     Active Substance: GABAPENTIN
  13. JANUVIA [Concomitant]
     Active Substance: SITAGLIPTIN PHOSPHATE
  14. LEVEMIR [Concomitant]
     Active Substance: INSULIN DETEMIR
  15. LEVOTHYROXINE SODIUM. [Concomitant]
     Active Substance: LEVOTHYROXINE SODIUM
  16. METFORMIN HCL [Concomitant]
     Active Substance: METFORMIN HYDROCHLORIDE
  17. PRAVACHOL [Concomitant]
     Active Substance: PRAVASTATIN SODIUM
  18. TYKERB [Concomitant]
     Active Substance: LAPATINIB DITOSYLATE
  19. ATORVASTATIN [Concomitant]
     Active Substance: ATORVASTATIN
  20. METHIMAZOLE. [Concomitant]
     Active Substance: METHIMAZOLE

REACTIONS (2)
  - Pain in extremity [None]
  - Skin exfoliation [None]
